FAERS Safety Report 22257155 (Version 1)
Quarter: 2023Q2

REPORT INFORMATION
  Report Type: Spontaneous
  Country: US (occurrence: US)
  Receive Date: 20230427
  Receipt Date: 20230427
  Transmission Date: 20230722
  Serious: Yes (Other)
  Sender: FDA-Public Use
  Company Number: US-BRISTOL-MYERS SQUIBB COMPANY-2023-056712

PATIENT
  Age: 96 Year
  Sex: Male
  Weight: 72.57 kg

DRUGS (1)
  1. POMALYST [Suspect]
     Active Substance: POMALIDOMIDE
     Indication: Plasma cell myeloma
     Dosage: EVERY OTHER DAY ON DAYS 1-14 OF 21 DAY CYCLE
     Route: 048
     Dates: start: 20190901

REACTIONS (2)
  - Arthropathy [Recovered/Resolved]
  - Off label use [Unknown]
